FAERS Safety Report 8912192 (Version 1)
Quarter: 2012Q4

REPORT INFORMATION
  Report Type: 
  Country: IT (occurrence: IT)
  Receive Date: 20121116
  Receipt Date: 20121116
  Transmission Date: 20130627
  Serious: Yes (Hospitalization, Other)
  Sender: FDA-Public Use
  Company Number: IT-ELI_LILLY_AND_COMPANY-IT201211001506

PATIENT
  Age: 34 Year
  Sex: Male

DRUGS (6)
  1. ZYPREXA [Suspect]
     Indication: MENTAL DISORDER
     Dosage: 1 DF, unknown
     Route: 048
     Dates: start: 20121018, end: 20121018
  2. HALOPERIDOL [Concomitant]
     Indication: MENTAL DISORDER
     Dosage: 1 DF, unknown
     Route: 048
     Dates: start: 20121018, end: 20121018
  3. RAMIPRIL [Concomitant]
     Indication: HYPERTENSION
     Dosage: 1 DF, unknown
     Dates: start: 20121018, end: 20121018
  4. CHLORPROMAZINE [Concomitant]
     Indication: MENTAL DISORDER
     Dosage: 1 DF, unknown
     Dates: start: 20121018, end: 20121018
  5. CARBAMAZEPINE [Concomitant]
     Indication: MENTAL DISORDER
     Dosage: 1 DF, unknown
     Dates: start: 20121018, end: 20121018
  6. VALPROIC ACID [Concomitant]
     Indication: MENTAL DISORDER
     Dosage: 1 DF, unknown
     Dates: start: 20121018, end: 20121018

REACTIONS (1)
  - Poisoning deliberate [Unknown]
